FAERS Safety Report 12645627 (Version 1)
Quarter: 2016Q3

REPORT INFORMATION
  Report Type: Spontaneous
  Country: FR (occurrence: FR)
  Receive Date: 20160811
  Receipt Date: 20160811
  Transmission Date: 20161109
  Serious: Yes (Hospitalization)
  Sender: FDA-Public Use
  Company Number: FR-SA-2016SA146233

PATIENT
  Age: 73 Year
  Sex: Female

DRUGS (10)
  1. DIFFU K [Suspect]
     Active Substance: POTASSIUM CHLORIDE
     Route: 065
  2. DEROXAT [Concomitant]
     Active Substance: PAROXETINE HYDROCHLORIDE
  3. IMOVANE [Suspect]
     Active Substance: ZOPICLONE
     Dosage: FILM COATED DIVISIBLE TABLET
     Route: 065
  4. CERIS [Concomitant]
     Active Substance: TROSPIUM CHLORIDE
     Dosage: 1 AT NOON
  5. XARELTO [Suspect]
     Active Substance: RIVAROXABAN
     Route: 048
  6. DISCOTRINE [Suspect]
     Active Substance: NITROGLYCERIN
     Route: 065
  7. AMLOR [Suspect]
     Active Substance: AMLODIPINE BESYLATE
     Route: 065
  8. LASILIX [Concomitant]
     Active Substance: FUROSEMIDE
     Dosage: 1 AT NOON
  9. APROVEL [Suspect]
     Active Substance: IRBESARTAN
     Route: 048
  10. LEXOMIL [Suspect]
     Active Substance: BROMAZEPAM
     Route: 065

REACTIONS (1)
  - Subdural haematoma [Recovered/Resolved]

NARRATIVE: CASE EVENT DATE: 20160114
